FAERS Safety Report 6286767-9 (Version None)
Quarter: 2009Q3

REPORT INFORMATION
  Report Type: 
  Country: None (occurrence: None)
  Receive Date: 20090728
  Receipt Date: 20090716
  Transmission Date: 20100115
  Serious: Yes (Hospitalization)
  Sender: FDA-Public Use
  Company Number: DE-PFIZER INC-2009204279

PATIENT
  Age: 63 Year

DRUGS (9)
  1. SUTENT [Suspect]
     Indication: GASTROINTESTINAL STROMAL TUMOUR
     Dosage: 37.5 MG, 1X/DAY
     Route: 048
     Dates: start: 20070101
  2. SUTENT [Suspect]
     Dosage: 50 MG/DAY
     Route: 048
     Dates: start: 20070301
  3. SUTENT [Suspect]
     Dosage: 37.5 MG, 1X/DAY
     Route: 048
     Dates: start: 20080101, end: 20090501
  4. L-THYROXIN [Concomitant]
     Dosage: 150 MG, 1X/DAY
     Route: 048
  5. METOPROLOL SUCCINATE [Concomitant]
     Dosage: 47.5 MG, 2X/DAY
     Route: 048
  6. BLOPRESS [Concomitant]
     Dosage: 16 MG, 2X/DAY
     Route: 048
     Dates: start: 20081001
  7. TOREM [Concomitant]
     Dosage: 2X10MG PLUS 1X10MG
     Route: 048
  8. ALLOPURINOL [Concomitant]
     Dosage: 300 MG, 1X/DAY
     Route: 048
  9. PANTOZOL [Concomitant]
     Dosage: 20 MG, 1X/DAY
     Route: 048

REACTIONS (4)
  - CARDIAC FAILURE [None]
  - CONGESTIVE CARDIOMYOPATHY [None]
  - DYSPNOEA [None]
  - OEDEMA PERIPHERAL [None]
